FAERS Safety Report 5089607-9 (Version None)
Quarter: 2006Q3

REPORT INFORMATION
  Report Type: 
  Country: None (occurrence: None)
  Receive Date: 20060822
  Receipt Date: 20060809
  Transmission Date: 20061208
  Serious: Yes (Hospitalization)
  Sender: FDA-Public Use
  Company Number: 2006EN000155

PATIENT
  Age: 4 Year
  Sex: Male
  Weight: 15.6 kg

DRUGS (3)
  1. ONCASPAR [Suspect]
     Indication: ACUTE LYMPHOCYTIC LEUKAEMIA
     Dosage: 2500 IU; QM; IM
     Route: 030
     Dates: start: 20060201, end: 20060623
  2. THIOGUANINE [Concomitant]
  3. CYCLOPHOSPHAMIDE [Concomitant]

REACTIONS (3)
  - ANGIONEUROTIC OEDEMA [None]
  - HYPERSENSITIVITY [None]
  - URTICARIA [None]
